FAERS Safety Report 7375693-X (Version None)
Quarter: 2011Q1

REPORT INFORMATION
  Report Type: 
  Country: None (occurrence: None)
  Receive Date: 20110325
  Receipt Date: 20110318
  Transmission Date: 20110831
  Serious: Yes (Life-Threatening)
  Sender: FDA-Public Use
  Company Number: FR-ROCHE-750126

PATIENT
  Sex: Male
  Weight: 62 kg

DRUGS (11)
  1. PEGINTERFERON ALFA-2A [Suspect]
     Route: 065
     Dates: start: 20100226
  2. LEDERFOLINE [Concomitant]
     Dates: start: 20100708
  3. FILGRASTIM [Suspect]
     Dosage: 30 MU/0.5 ML/WEEKS
     Route: 065
     Dates: start: 20100708
  4. CRESTOR [Concomitant]
     Dates: start: 20060115
  5. RAMIPRIL [Concomitant]
     Dates: start: 20090416
  6. ISENTRESS [Concomitant]
     Dates: start: 20090416
  7. RIBAVIRIN [Suspect]
     Route: 065
     Dates: start: 20100624
  8. INTELENCE [Concomitant]
     Dates: start: 20090416
  9. KEPPRA [Concomitant]
     Dates: start: 20060115
  10. EPOETIN BETA [Suspect]
     Indication: NEUTROPENIA
     Dosage: X 2/WEEK.
     Route: 065
     Dates: start: 20100722
  11. METFORMINE [Concomitant]
     Dates: start: 20080118

REACTIONS (1)
  - B-CELL LYMPHOMA [None]
